FAERS Safety Report 5506390-0 (Version None)
Quarter: 2007Q4

REPORT INFORMATION
  Report Type: 
  Country: None (occurrence: None)
  Receive Date: 20071105
  Receipt Date: 20071026
  Transmission Date: 20080405
  Serious: Yes (Other)
  Sender: FDA-Public Use
  Company Number: US-JNJFOC-20071007937

PATIENT
  Age: 37 Year
  Sex: Female

DRUGS (1)
  1. DITROPAN XL [Suspect]
     Indication: URINARY INCONTINENCE
     Route: 048

REACTIONS (1)
  - DENTAL CARIES [None]
